FAERS Safety Report 8570001-0 (Version None)
Quarter: 2012Q3

REPORT INFORMATION
  Report Type: 
  Country: None (occurrence: None)
  Receive Date: 20120803
  Receipt Date: 20120404
  Transmission Date: 20120928
  Serious: No
  Sender: FDA-Public Use
  Company Number: US-ABBOTT-12P-163-0921624-00

PATIENT
  Sex: Female
  Weight: 99.88 kg

DRUGS (10)
  1. COQ10 [Concomitant]
     Indication: PRODUCT USED FOR UNKNOWN INDICATION
  2. GLUCOSAMINE + CHONDROITIN [Concomitant]
     Indication: MEDICAL DIET
  3. NIASPAN [Suspect]
     Indication: BLOOD CHOLESTEROL
  4. VITAMIN D [Concomitant]
     Indication: MEDICAL DIET
  5. SYNTHROID [Concomitant]
     Indication: PRODUCT USED FOR UNKNOWN INDICATION
  6. LISINOPRIL [Concomitant]
     Indication: HYPERTENSION
  7. POMEGRANATE CAPS [Concomitant]
     Indication: MEDICAL DIET
  8. FRUIT FESTIVE [Concomitant]
     Indication: MEDICAL DIET
  9. VEGI FESTIVE [Concomitant]
     Indication: MEDICAL DIET
  10. TYLENOL ARTHRITIS [Concomitant]
     Indication: PRODUCT USED FOR UNKNOWN INDICATION

REACTIONS (2)
  - FLUSHING [None]
  - FEELING HOT [None]
